FAERS Safety Report 16502821 (Version 1)
Quarter: 2019Q3

REPORT INFORMATION
  Report Type: Spontaneous
  Country: US (occurrence: US)
  Receive Date: 20190701
  Receipt Date: 20190701
  Transmission Date: 20191004
  Serious: No
  Sender: FDA-Public Use
  Company Number: US-SHIRE-US201920739

PATIENT
  Age: 45 Year
  Sex: Female

DRUGS (1)
  1. VYVANSE [Suspect]
     Active Substance: LISDEXAMFETAMINE DIMESYLATE
     Indication: AUTONOMIC NERVOUS SYSTEM IMBALANCE
     Dosage: 60 MILLIGRAM, 1X/DAY:QD; IN MORNING
     Route: 065
     Dates: start: 201809

REACTIONS (3)
  - Mastocytosis [Not Recovered/Not Resolved]
  - Unevaluable event [Unknown]
  - Drug ineffective for unapproved indication [Unknown]
